FAERS Safety Report 14937076 (Version 1)
Quarter: 2018Q2

REPORT INFORMATION
  Report Type: Spontaneous
  Country: FR (occurrence: FR)
  Receive Date: 20180525
  Receipt Date: 20180525
  Transmission Date: 20180711
  Serious: Yes (Other)
  Sender: FDA-Public Use
  Company Number: FR-MERCK KGAA-2048428

PATIENT
  Age: 72 Year
  Sex: Female

DRUGS (1)
  1. NOVOTHYROX [Suspect]
     Active Substance: LEVOTHYROXINE SODIUM
     Indication: THYROID DISORDER
     Dates: start: 201704

REACTIONS (26)
  - Epistaxis [None]
  - Hyperacusis [None]
  - Aphasia [None]
  - Asocial behaviour [None]
  - Fatigue [None]
  - Dizziness [None]
  - Dyspepsia [None]
  - Dyspnoea exertional [None]
  - Loss of personal independence in daily activities [None]
  - Depressed mood [None]
  - Stress [None]
  - Gastrointestinal motility disorder [None]
  - Insomnia [None]
  - Decreased interest [None]
  - Emotional distress [None]
  - Somnolence [None]
  - Gingival bleeding [None]
  - Gastrooesophageal reflux disease [None]
  - Feeling abnormal [None]
  - Constipation [None]
  - Femoral hernia [None]
  - Social avoidant behaviour [None]
  - Asthenia [None]
  - Muscle disorder [None]
  - Red blood cell sedimentation rate increased [None]
  - Headache [None]

NARRATIVE: CASE EVENT DATE: 2017
